FAERS Safety Report 5395460-6 (Version None)
Quarter: 2007Q3

REPORT INFORMATION
  Report Type: 
  Country: None (occurrence: None)
  Receive Date: 20070724
  Receipt Date: 20070719
  Transmission Date: 20080115
  Serious: Yes (Hospitalization)
  Sender: FDA-Public Use
  Company Number: B0475593A

PATIENT
  Age: 72 Year
  Sex: Male
  Weight: 70 kg

DRUGS (2)
  1. ZOVIRAX [Suspect]
     Indication: HERPES ZOSTER
     Dosage: 500MG THREE TIMES PER DAY
     Route: 042
     Dates: start: 20070510, end: 20070512
  2. ZOVIRAX [Suspect]
     Dosage: 800MG THREE TIMES PER DAY
     Route: 048
     Dates: start: 20070513, end: 20070517

REACTIONS (5)
  - CONFUSIONAL STATE [None]
  - DEHYDRATION [None]
  - DYSURIA [None]
  - INCONTINENCE [None]
  - RENAL FAILURE ACUTE [None]
